FAERS Safety Report 14526903 (Version 1)
Quarter: 2018Q1

REPORT INFORMATION
  Report Type: Spontaneous
  Country: US (occurrence: US)
  Receive Date: 20180212
  Receipt Date: 20180212
  Transmission Date: 20180509
  Serious: Yes (Other)
  Sender: FDA-Public Use
  Company Number: None

PATIENT
  Weight: 75.15 kg

DRUGS (8)
  1. CO-Q10 [Concomitant]
  2. CARVEDILOL. [Concomitant]
     Active Substance: CARVEDILOL
  3. METFORMIN [Concomitant]
     Active Substance: METFORMIN HYDROCHLORIDE
  4. ISOSORBIDE. [Concomitant]
     Active Substance: ISOSORBIDE
  5. MIRABEGRAN 25 MG [Suspect]
     Active Substance: MIRABEGRON
     Indication: URINARY INCONTINENCE
     Dosage: ?          QUANTITY:1 TABLET(S);?
     Route: 048
     Dates: start: 20170601, end: 20171115
  6. ESCITALOPRAM [Concomitant]
     Active Substance: ESCITALOPRAM OXALATE
  7. BABY ASPIRIN [Concomitant]
     Active Substance: ASPIRIN
  8. MULTI VITAMIN [Concomitant]
     Active Substance: VITAMINS

REACTIONS (3)
  - Joint swelling [None]
  - Confusional state [None]
  - Peripheral swelling [None]

NARRATIVE: CASE EVENT DATE: 20171115
